FAERS Safety Report 10673739 (Version 3)
Quarter: 2015Q1

REPORT INFORMATION
  Report Type: Spontaneous
  Country: CA (occurrence: CA)
  Receive Date: 20141224
  Receipt Date: 20150109
  Transmission Date: 20150720
  Serious: Yes (Hospitalization)
  Sender: FDA-Public Use
  Company Number: CA-ASPEN PHARMA TRADING LIMITED US-AG-2014-008367

PATIENT
  Age: 73 Year
  Sex: Male

DRUGS (34)
  1. CHLORAMBUCIL [Suspect]
     Active Substance: CHLORAMBUCIL
     Route: 048
     Dates: start: 20140813, end: 20140813
  2. CETIRIZINE [Concomitant]
     Active Substance: CETIRIZINE HYDROCHLORIDE
     Indication: PROPHYLAXIS
     Route: 048
     Dates: start: 20140706, end: 20140710
  3. ALLOPURINOL. [Concomitant]
     Active Substance: ALLOPURINOL
     Indication: PROPHYLAXIS
     Route: 048
     Dates: start: 20140707, end: 20140711
  4. BENADRYL [Concomitant]
     Active Substance: DIPHENHYDRAMINE HYDROCHLORIDE
     Route: 042
     Dates: start: 20140709, end: 20140709
  5. NORMAL SALINE [Concomitant]
     Active Substance: SODIUM CHLORIDE
     Route: 042
     Dates: start: 20140709, end: 20140710
  6. OBINUTUZUMAB [Suspect]
     Active Substance: OBINUTUZUMAB
     Route: 041
     Dates: start: 20140710, end: 20140710
  7. ASPIRIN. [Concomitant]
     Active Substance: ASPIRIN
     Indication: PROPHYLAXIS
     Route: 048
     Dates: start: 201202
  8. CHLORAMBUCIL [Suspect]
     Active Substance: CHLORAMBUCIL
     Route: 048
     Dates: start: 20140910, end: 20140910
  9. OBINUTUZUMAB [Suspect]
     Active Substance: OBINUTUZUMAB
     Route: 041
     Dates: start: 20140714, end: 20140714
  10. OBINUTUZUMAB [Suspect]
     Active Substance: OBINUTUZUMAB
     Route: 041
     Dates: start: 20140910, end: 20140910
  11. LOSEC [Concomitant]
     Active Substance: OMEPRAZOLE
     Indication: PRODUCT USED FOR UNKNOWN INDICATION
     Route: 048
     Dates: start: 201202
  12. NORMAL SALINE [Concomitant]
     Active Substance: SODIUM CHLORIDE
     Indication: PROPHYLAXIS
     Route: 042
     Dates: start: 20140709, end: 20140709
  13. NORMAL SALINE [Concomitant]
     Active Substance: SODIUM CHLORIDE
     Route: 042
     Dates: start: 20140708, end: 20140709
  14. CHLORAMBUCIL [Suspect]
     Active Substance: CHLORAMBUCIL
     Route: 048
     Dates: start: 20141010, end: 20141010
  15. MIRABEGRON [Concomitant]
     Active Substance: MIRABEGRON
     Indication: POLLAKIURIA
     Route: 065
     Dates: start: 2010, end: 20141001
  16. MAXERAN [Concomitant]
     Active Substance: METOCLOPRAMIDE HYDROCHLORIDE
     Indication: PRODUCT USED FOR UNKNOWN INDICATION
     Route: 042
     Dates: start: 20140709, end: 20140709
  17. OBINUTUZUMAB [Suspect]
     Active Substance: OBINUTUZUMAB
     Indication: CHRONIC LYMPHOCYTIC LEUKAEMIA
     Route: 041
     Dates: start: 20140709, end: 20140709
  18. OBINUTUZUMAB [Suspect]
     Active Substance: OBINUTUZUMAB
     Route: 041
     Dates: start: 20140813, end: 20140813
  19. TYLENOL [Concomitant]
     Active Substance: ACETAMINOPHEN
     Indication: PROPHYLAXIS
     Route: 048
     Dates: start: 20140709
  20. RANITIDINE [Concomitant]
     Active Substance: RANITIDINE\RANITIDINE HYDROCHLORIDE
     Indication: PRODUCT USED FOR UNKNOWN INDICATION
     Route: 048
     Dates: start: 20140706, end: 20140710
  21. OBINUTUZUMAB [Suspect]
     Active Substance: OBINUTUZUMAB
     Route: 041
     Dates: start: 20141105, end: 20141105
  22. OBINUTUZUMAB [Suspect]
     Active Substance: OBINUTUZUMAB
     Route: 041
     Dates: start: 20141203, end: 20141203
  23. MONTELUKAST [Concomitant]
     Active Substance: MONTELUKAST SODIUM
     Indication: PROPHYLAXIS
     Route: 048
     Dates: start: 20140706, end: 20140708
  24. CHLORAMBUCIL [Suspect]
     Active Substance: CHLORAMBUCIL
     Indication: CHRONIC LYMPHOCYTIC LEUKAEMIA
     Route: 048
     Dates: start: 20140709, end: 20140709
  25. CHLORAMBUCIL [Suspect]
     Active Substance: CHLORAMBUCIL
     Route: 048
     Dates: start: 20140827, end: 20140827
  26. CHLORAMBUCIL [Suspect]
     Active Substance: CHLORAMBUCIL
     Route: 048
     Dates: start: 20141203, end: 20141203
  27. HEPARIN [Concomitant]
     Active Substance: HEPARIN SODIUM
     Indication: PROPHYLAXIS
     Route: 058
     Dates: start: 20141211
  28. CHLORAMBUCIL [Suspect]
     Active Substance: CHLORAMBUCIL
     Route: 048
     Dates: start: 20140723, end: 20140723
  29. OBINUTUZUMAB [Suspect]
     Active Substance: OBINUTUZUMAB
     Route: 041
     Dates: start: 20140721, end: 20140721
  30. OBINUTUZUMAB [Suspect]
     Active Substance: OBINUTUZUMAB
     Route: 041
     Dates: start: 20141010, end: 20141010
  31. ROSUVASTATIN [Concomitant]
     Active Substance: ROSUVASTATIN
     Indication: DYSLIPIDAEMIA
     Route: 048
  32. TYLENOL [Concomitant]
     Active Substance: ACETAMINOPHEN
     Indication: ARTHRALGIA
     Route: 048
     Dates: start: 201405
  33. DEXAMETHASONE. [Concomitant]
     Active Substance: DEXAMETHASONE
     Indication: PROPHYLAXIS
     Route: 042
     Dates: start: 20140709, end: 20140710
  34. BENADRYL [Concomitant]
     Active Substance: DIPHENHYDRAMINE HYDROCHLORIDE
     Indication: PROPHYLAXIS
     Route: 042
     Dates: start: 20140709

REACTIONS (3)
  - Lung consolidation [None]
  - Pneumonia [Recovered/Resolved]
  - Pleural effusion [None]

NARRATIVE: CASE EVENT DATE: 20141106
